FAERS Safety Report 9509328 (Version 1)
Quarter: 2013Q3

REPORT INFORMATION
  Report Type: Spontaneous
  Country: US (occurrence: US)
  Receive Date: 20130909
  Receipt Date: 20130909
  Transmission Date: 20140515
  Serious: Yes (Hospitalization)
  Sender: FDA-Public Use
  Company Number: US-BRISTOL-MYERS SQUIBB COMPANY-19002054

PATIENT
  Age: 33 Year
  Sex: Female
  Weight: 48.52 kg

DRUGS (3)
  1. ABILIFY [Suspect]
     Indication: BIPOLAR DISORDER
     Dosage: STARTED 6 YEARS AGO?AT NIGHT.?DECREASED DOSE TO 2MG 1 YR AGO.
  2. INSULIN [Concomitant]
  3. ATIVAN [Concomitant]
     Indication: ANXIETY

REACTIONS (3)
  - Adverse event [Unknown]
  - Weight decreased [Unknown]
  - Drug dose omission [Unknown]
